FAERS Safety Report 4445913-X (Version None)
Quarter: 2004Q3

REPORT INFORMATION
  Report Type: 
  Country: None (occurrence: None)
  Receive Date: 20040908
  Receipt Date: 20040908
  Transmission Date: 20050211
  Serious: Yes (Hospitalization)
  Sender: FDA-Public Use
  Company Number: None

PATIENT
  Age: 75 Year
  Sex: Male

DRUGS (10)
  1. CHLORDIAZEPOXIDE [Suspect]
     Indication: ANXIETY
  2. GABAPENTIN [Concomitant]
  3. VITAMIN B-12 [Concomitant]
  4. TRAMADOL HCL [Concomitant]
  5. FOSAMAX [Concomitant]
  6. OSCAL [Concomitant]
  7. SERTRALINE HCL [Concomitant]
  8. GUAIFENESIN [Concomitant]
  9. METHOCARBAMOL [Concomitant]
  10. OMEPRAZOLE [Concomitant]

REACTIONS (2)
  - OVERDOSE [None]
  - SYNCOPE [None]
